FAERS Safety Report 6420405-7 (Version None)
Quarter: 2009Q4

REPORT INFORMATION
  Report Type: 
  Country: None (occurrence: None)
  Receive Date: 20091029
  Receipt Date: 20091016
  Transmission Date: 20100525
  Serious: Yes (Hospitalization)
  Sender: FDA-Public Use
  Company Number: US-ELI_LILLY_AND_COMPANY-US200908006031

PATIENT
  Sex: Female
  Weight: 66.213 kg

DRUGS (6)
  1. CYMBALTA [Suspect]
     Indication: DEPRESSION
     Dosage: 60 MG, 2/D
  2. FERROUS SULFATE TAB [Concomitant]
  3. CALCIUM [Concomitant]
  4. CARAFATE [Concomitant]
  5. ACIPHEX [Concomitant]
  6. VITAMINS [Concomitant]

REACTIONS (1)
  - MENINGITIS ASEPTIC [None]
